FAERS Safety Report 8079334-8 (Version None)
Quarter: 2012Q1

REPORT INFORMATION
  Report Type: 
  Country: None (occurrence: None)
  Receive Date: 20120128
  Receipt Date: 20110824
  Transmission Date: 20120608
  Serious: No
  Sender: FDA-Public Use
  Company Number: US-ABBOTT-11P-163-0848442-00

PATIENT
  Sex: Male

DRUGS (7)
  1. ZOLOFT [Concomitant]
     Indication: RELAXATION THERAPY
  2. HUMIRA [Suspect]
     Dates: end: 20110801
  3. BETAMETHASONE DIPROPIONATE [Concomitant]
     Indication: PSORIASIS
     Route: 061
     Dates: start: 20010101
  4. HUMIRA [Suspect]
     Dosage: ONE DOSE ON DAY 8
     Dates: start: 20110101, end: 20110101
  5. HUMIRA [Suspect]
     Indication: PSORIASIS
     Dosage: ONE DOSE ON DAY ONE
     Dates: start: 20110601, end: 20110601
  6. HUMIRA [Suspect]
     Dates: start: 20110801
  7. ZOLOFT [Concomitant]
     Indication: ATTENTION DEFICIT/HYPERACTIVITY DISORDER

REACTIONS (3)
  - INCORRECT DOSE ADMINISTERED [None]
  - INAPPROPRIATE SCHEDULE OF DRUG ADMINISTRATION [None]
  - DRUG INEFFECTIVE [None]
